FAERS Safety Report 11748959 (Version 2)
Quarter: 2015Q4

REPORT INFORMATION
  Report Type: Spontaneous
  Country: FR (occurrence: FR)
  Receive Date: 20151118
  Receipt Date: 20151229
  Transmission Date: 20160304
  Serious: Yes (Death, Other)
  Sender: FDA-Public Use
  Company Number: FR-PFIZER INC-2015309525

PATIENT
  Age: 65 Year
  Sex: Male

DRUGS (4)
  1. XGEVA [Concomitant]
     Active Substance: DENOSUMAB
     Dosage: 1 DF, MONTHLY
     Dates: start: 20141222
  2. CURCUMA LONGA [Concomitant]
     Active Substance: TURMERIC
  3. XALKORI [Suspect]
     Active Substance: CRIZOTINIB
     Indication: NON-SMALL CELL LUNG CANCER
     Dosage: 1 DF, 2X/DAY
     Dates: start: 20141222
  4. PROPOLIS [Concomitant]
     Active Substance: PROPOLIS WAX

REACTIONS (3)
  - Non-small cell lung cancer [Fatal]
  - Disease progression [Fatal]
  - Staphylococcal infection [Unknown]
